FAERS Safety Report 8415558-5 (Version None)
Quarter: 2012Q2

REPORT INFORMATION
  Report Type: 
  Country: None (occurrence: None)
  Receive Date: 20120606
  Receipt Date: 20120522
  Transmission Date: 20120825
  Serious: Yes (Death, Hospitalization, Other)
  Sender: FDA-Public Use
  Company Number: US-PFIZER INC-US-WYE-H13729510

PATIENT
  Age: 41 Year
  Sex: Female

DRUGS (10)
  1. CARISOPRODOL [Concomitant]
     Route: 065
  2. QUETIAPINE [Suspect]
     Dosage: UNK
     Route: 048
     Dates: start: 20080101, end: 20080101
  3. OXYMORPHONE [Suspect]
     Dosage: UNK
     Route: 048
     Dates: start: 20080101, end: 20080101
  4. VENLAFAXINE HCL [Suspect]
     Dosage: UNK
     Route: 048
     Dates: start: 20080101, end: 20080101
  5. HYDROCODONE [Concomitant]
     Route: 065
  6. SALICYLATE SODIUM [Suspect]
     Dosage: UNK
     Route: 048
     Dates: start: 20080101, end: 20080101
  7. CLONAZEPAM [Suspect]
     Dosage: UNK
     Route: 048
     Dates: start: 20080101, end: 20080101
  8. DIPHENHYDRAMINE AND PARACETAMOL [Suspect]
     Dosage: UNK
     Route: 048
     Dates: start: 20080101, end: 20080101
  9. ZOLPIDEM [Suspect]
     Dosage: UNK
     Route: 048
     Dates: start: 20080101, end: 20080101
  10. HYDROXYZINE [Suspect]
     Dosage: UNK
     Route: 048
     Dates: start: 20080101, end: 20080101

REACTIONS (8)
  - COMPLETED SUICIDE [None]
  - ACIDOSIS [None]
  - ELECTROENCEPHALOGRAM ABNORMAL [None]
  - PNEUMONIA ASPIRATION [None]
  - HYPOTENSION [None]
  - CYANOSIS [None]
  - PANCREATITIS [None]
  - UNRESPONSIVE TO STIMULI [None]
